FAERS Safety Report 6330315-1 (Version None)
Quarter: 2009Q3

REPORT INFORMATION
  Report Type: 
  Country: None (occurrence: None)
  Receive Date: 20090827
  Receipt Date: 20090714
  Transmission Date: 20100115
  Serious: No
  Sender: FDA-Public Use
  Company Number: US-KINGPHARMUSA00001-K200900831

PATIENT
  Age: 77 Year
  Sex: Male

DRUGS (2)
  1. FLECTOR [Suspect]
     Indication: BACK PAIN
     Dosage: 5-6 PATCH, BID
     Route: 061
     Dates: start: 20090708
  2. OXYCONTIN [Concomitant]
     Indication: BACK PAIN
     Dosage: UNK

REACTIONS (1)
  - CONFUSIONAL STATE [None]
